FAERS Safety Report 13698873 (Version 5)
Quarter: 2020Q3

REPORT INFORMATION
  Report Type: Spontaneous
  Country: GB (occurrence: GB)
  Receive Date: 20170628
  Receipt Date: 20200724
  Transmission Date: 20201102
  Serious: Yes (Hospitalization, Other)
  Sender: FDA-Public Use
  Company Number: GB-BAYER-2017-123740

PATIENT
  Age: 50 Year
  Sex: Female

DRUGS (2)
  1. MIRENA [Suspect]
     Active Substance: LEVONORGESTREL
     Indication: CONTRACEPTION
  2. MIRENA [Suspect]
     Active Substance: LEVONORGESTREL
     Indication: MENORRHAGIA
     Dosage: 20 MCG/24HR, CONT
     Route: 015
     Dates: start: 20170605, end: 20170616

REACTIONS (22)
  - Feeling hot [Recovered/Resolved]
  - Salpingitis [Recovered/Resolved]
  - Disorientation [Recovered/Resolved]
  - Abdominal tenderness [Recovered/Resolved]
  - Groin pain [Recovered/Resolved]
  - Loss of consciousness [Recovered/Resolved]
  - Malaise [Recovered/Resolved]
  - Dizziness [Recovered/Resolved]
  - Device use issue [None]
  - Headache [Recovered/Resolved]
  - Decreased appetite [Recovered/Resolved]
  - Pyrexia [Recovered/Resolved]
  - Pelvic inflammatory disease [Recovered/Resolved]
  - Bacterial vaginosis [Recovered/Resolved]
  - Abdominal pain lower [Recovered/Resolved]
  - Vaginal discharge [Recovered/Resolved]
  - Influenza like illness [Recovered/Resolved]
  - Tubo-ovarian abscess [Recovered/Resolved]
  - Device physical property issue [Recovered/Resolved]
  - Nausea [Recovered/Resolved]
  - Procedural pain [None]
  - Scar [None]

NARRATIVE: CASE EVENT DATE: 20170605
